FAERS Safety Report 12370393 (Version 1)
Quarter: 2016Q2

REPORT INFORMATION
  Report Type: Spontaneous
  Country: US (occurrence: None)
  Receive Date: 20160513
  Receipt Date: 20160513
  Transmission Date: 20160815
  Serious: No
  Sender: FDA-Public Use
  Company Number: None

PATIENT
  Age: 32 Year
  Sex: Male

DRUGS (1)
  1. ZYVOX [Suspect]
     Active Substance: LINEZOLID
     Indication: CYSTIC FIBROSIS
     Route: 042
     Dates: start: 20160506, end: 20160506

REACTIONS (2)
  - Rash generalised [None]
  - Lip blister [None]

NARRATIVE: CASE EVENT DATE: 20160506
